FAERS Safety Report 5843754-X (Version None)
Quarter: 2008Q3

REPORT INFORMATION
  Report Type: 
  Country: None (occurrence: None)
  Receive Date: 20080813
  Receipt Date: 20080617
  Transmission Date: 20090109
  Serious: Yes (Other)
  Sender: FDA-Public Use
  Company Number: US-BRISTOL-MYERS SQUIBB COMPANY-14233431

PATIENT
  Sex: Female

DRUGS (2)
  1. IXEMPRA KIT [Suspect]
     Indication: BREAST CANCER
     Dosage: RECEIVED 5DOSES OF  IXEMPRA
     Route: 042
  2. XELODA [Concomitant]
     Dosage: XELODA 2000 MG/M2 FOR 2 WEEKS IN A ROW WITH A 1 WEEK BREAK. THEN CYCLE REPEATED

REACTIONS (1)
  - NEUTROPHIL COUNT DECREASED [None]
